FAERS Safety Report 14844900 (Version 1)
Quarter: 2018Q2

REPORT INFORMATION
  Report Type: Spontaneous
  Country: AU (occurrence: AU)
  Receive Date: 20180504
  Receipt Date: 20180504
  Transmission Date: 20180711
  Serious: Yes (Disabling)
  Sender: FDA-Public Use
  Company Number: AU-COLGATE PALMOLIVE COMPANY-20180501012

PATIENT

DRUGS (1)
  1. PEROXYL MOUTH SORE MILD MINT [Suspect]
     Active Substance: HYDROGEN PEROXIDE
     Indication: BREATH ODOUR
     Dosage: 1 CAP AS DIRECTED, ONCE OR TWICE A DAY
     Route: 048
     Dates: start: 201801, end: 2018

REACTIONS (10)
  - Ear discomfort [Not Recovered/Not Resolved]
  - Fatigue [Not Recovered/Not Resolved]
  - Dandruff [Not Recovered/Not Resolved]
  - Ear pain [Not Recovered/Not Resolved]
  - Impaired work ability [None]
  - Abdominal pain upper [Not Recovered/Not Resolved]
  - Tongue discolouration [Not Recovered/Not Resolved]
  - Pruritus [Not Recovered/Not Resolved]
  - Oral candidiasis [Not Recovered/Not Resolved]
  - Dry skin [Not Recovered/Not Resolved]

NARRATIVE: CASE EVENT DATE: 2018
